FAERS Safety Report 21437027 (Version 8)
Quarter: 2025Q2

REPORT INFORMATION
  Report Type: Spontaneous
  Country: US (occurrence: US)
  Receive Date: 20221010
  Receipt Date: 20250423
  Transmission Date: 20250716
  Serious: Yes (Disabling, Other)
  Sender: PFIZER
  Company Number: US-PFIZER INC-PV202200079193

PATIENT
  Age: 80 Year
  Sex: Female

DRUGS (5)
  1. XELJANZ XR [Suspect]
     Active Substance: TOFACITINIB CITRATE
     Indication: Rheumatoid arthritis
  2. XELJANZ XR [Suspect]
     Active Substance: TOFACITINIB CITRATE
     Dosage: 11 MG, DAILY
  3. XELJANZ XR [Suspect]
     Active Substance: TOFACITINIB CITRATE
     Dosage: 11 MG, 1X/DAY
  4. FOSAMAX [Concomitant]
     Active Substance: ALENDRONATE SODIUM
  5. INFLUENZA VIRUS VACCINE [Concomitant]
     Active Substance: INFLUENZA VIRUS VACCINE
     Indication: Influenza immunisation
     Dates: start: 20231030, end: 20231030

REACTIONS (5)
  - Blindness [Not Recovered/Not Resolved]
  - Skin cancer [Unknown]
  - Asthenia [Unknown]
  - Skin papilloma [Unknown]
  - COVID-19 [Unknown]

NARRATIVE: CASE EVENT DATE: 20240601
